FAERS Safety Report 9166847 (Version 1)
Quarter: 2013Q1

REPORT INFORMATION
  Report Type: Spontaneous
  Country: US (occurrence: US)
  Receive Date: 20130318
  Receipt Date: 20130318
  Transmission Date: 20140127
  Serious: No
  Sender: FDA-Public Use
  Company Number: US-009507513-1303USA003545

PATIENT
  Sex: Female

DRUGS (3)
  1. VICTRELIS [Suspect]
     Indication: HEPATITIS C
     Dosage: 800 MG, TID
     Route: 048
  2. RIBAPAK [Suspect]
  3. PEGINTRON [Suspect]
     Dosage: 120 MICROGRAM, QW
     Dates: start: 20130214

REACTIONS (3)
  - Sleep disorder [Unknown]
  - Fatigue [Unknown]
  - Sense of oppression [Unknown]
